FAERS Safety Report 9137979 (Version 1)
Quarter: 2013Q1

REPORT INFORMATION
  Report Type: Report from Study
  Country: AT (occurrence: AT)
  Receive Date: 20130304
  Receipt Date: 20130304
  Transmission Date: 20140127
  Serious: Yes (Hospitalization)
  Sender: FDA-Public Use
  Company Number: PHHO2013AT003342

PATIENT
  Age: 77 Year
  Sex: Male

DRUGS (2)
  1. EVEROLIMUS [Suspect]
     Indication: HEPATIC CANCER
     Dosage: 2.5 MG, QD
     Route: 048
     Dates: start: 20120816, end: 20130218
  2. SORAFENIB [Suspect]
     Indication: HEPATIC CANCER
     Dosage: 400 MG, QD
     Route: 048
     Dates: start: 20120816, end: 20130218

REACTIONS (3)
  - Liver disorder [Recovered/Resolved with Sequelae]
  - Ascites [Recovered/Resolved with Sequelae]
  - Fatigue [Recovered/Resolved with Sequelae]
